FAERS Safety Report 5992256 (Version 9)
Quarter: 2013Q1

REPORT INFORMATION
  Report Type: Report from Study
  Country: CL (occurrence: CL)
  Receive Date: 20060227
  Receipt Date: 20130315
  Transmission Date: 20140127
  Serious: Yes (Hospitalization, Other)
  Sender: FDA-Public Use
  Company Number: CL-BRISTOL-MYERS SQUIBB COMPANY-13287461

PATIENT
  Age: 66 Year
  Sex: Male

DRUGS (10)
  1. CISPLATIN [Suspect]
     Indication: GASTRIC CANCER
     Dosage: CYCLE 3(D1 Q4W, 25MG/M2) ON 29-MAR-2006
     Route: 041
     Dates: start: 20060201
  2. 5-FU [Suspect]
     Indication: GASTRIC CANCER
     Dosage: IV,1660MG.5PER4 WK,?CYCLES:3 - 29MAR2006-01APR2006 (1660MG ONCE DAUILY)
     Route: 041
     Dates: start: 20060201
  3. CLONAZEPAM [Concomitant]
     Indication: ANXIETY
     Dosage: 01FEB2006-ONG?1.5MG,1 IN 12HR
     Route: 048
     Dates: start: 20051215
  4. DOMPERIDONE [Concomitant]
     Indication: ANTIEMETIC SUPPORTIVE CARE
     Dosage: 20MG,2 PER8 HOUR
     Route: 048
     Dates: start: 20051215, end: 20060406
  5. DOMPERIDONE [Concomitant]
     Indication: NAUSEA
     Dosage: 20MG,2 PER8 HOUR
     Route: 048
     Dates: start: 20051215, end: 20060406
  6. LOPERAMIDE [Concomitant]
     Indication: DIARRHOEA
     Route: 048
     Dates: start: 20060405
  7. PERENTERYL [Concomitant]
     Indication: DIARRHOEA
     Route: 048
     Dates: start: 20060405
  8. PARACETAMOL [Concomitant]
     Indication: DYSPHAGIA
     Route: 048
     Dates: start: 20060222
  9. POTASSIUM [Concomitant]
     Indication: HYPOKALAEMIA
     Route: 042
     Dates: start: 20060310, end: 20060315
  10. KETOROLAC [Concomitant]
     Indication: DYSPHAGIA
     Route: 048
     Dates: start: 20060222

REACTIONS (4)
  - Dehydration [Recovered/Resolved with Sequelae]
  - Clostridium difficile colitis [Recovered/Resolved]
  - Mucosal inflammation [Recovered/Resolved]
  - Anaemia [Recovered/Resolved with Sequelae]
